FAERS Safety Report 7030398-X (Version None)
Quarter: 2010Q4

REPORT INFORMATION
  Report Type: 
  Country: None (occurrence: None)
  Receive Date: 20101001
  Receipt Date: 20100901
  Transmission Date: 20110411
  Serious: Yes (Other)
  Sender: FDA-Public Use
  Company Number: CRC-10-152

PATIENT
  Age: 71 Year
  Sex: Female
  Weight: 62.5964 kg

DRUGS (3)
  1. OXALIPLATIN [Suspect]
     Indication: COLON CANCER METASTATIC
     Dosage: 180MG EVERY TWO WEEKS
     Dates: start: 20100713, end: 20100831
  2. OXALIPLATIN [Suspect]
     Indication: COLON CANCER METASTATIC
     Dosage: 180 MG EVERY TWO WEEKS
     Dates: start: 20100713, end: 20100831
  3. 5FU/LEUCOVORIN [Concomitant]

REACTIONS (1)
  - DYSPHAGIA [None]
